FAERS Safety Report 19857477 (Version 8)
Quarter: 2021Q4

REPORT INFORMATION
  Report Type: Report from Study
  Country: HU (occurrence: None)
  Receive Date: 20210920
  Receipt Date: 20211227
  Transmission Date: 20220303
  Serious: Yes (Life-Threatening)
  Sender: FDA-Public Use
  Company Number: HU-ROCHE-2912381

PATIENT
  Age: 69 Year
  Sex: Male
  Weight: 78 kg

DRUGS (18)
  1. ATEZOLIZUMAB [Suspect]
     Active Substance: ATEZOLIZUMAB
     Indication: Metastatic malignant melanoma
     Dosage: ON 25/AUG/2021, THE PATIENT RECEIVED THE MOST RECENT DOSE OF ATEZOLIZUMAB 264 ML PRIOR TO AE/SAE?DOS
     Route: 041
     Dates: start: 20171109
  2. VEMURAFENIB [Suspect]
     Active Substance: VEMURAFENIB
     Indication: Metastatic malignant melanoma
     Dosage: ON 08/SEP/2021, MOST RECENT DOSE OF VEMURAFENIB?PRIOR TO AE/SAE.?DOSE LAST STUDY DRUG ADMIN PRIOR SA
     Route: 048
     Dates: start: 20171012
  3. COBIMETINIB [Suspect]
     Active Substance: COBIMETINIB
     Indication: Metastatic malignant melanoma
     Dosage: ON 01/SEP/2021, MOST RECENT DOSE OF COBIMETINIB 60 MG PRIOR TO AE/SAE.?DOSE LAST STUDY DRUG ADMIN PR
     Route: 048
     Dates: start: 20171012
  4. ALLOPURINOL [Concomitant]
     Active Substance: ALLOPURINOL
     Indication: Hyperthyroidism
     Route: 048
     Dates: start: 20171229
  5. RAMIPRIL [Concomitant]
     Active Substance: RAMIPRIL
     Indication: Hypertension
     Route: 048
  6. CARDURA XL [Concomitant]
     Active Substance: DOXAZOSIN MESYLATE
     Indication: Hypertension
     Route: 048
  7. VENTER [Concomitant]
     Route: 048
  8. METOCLOPRAMIDE HYDROCHLORIDE [Concomitant]
     Active Substance: METOCLOPRAMIDE HYDROCHLORIDE
     Indication: Nausea
     Route: 048
  9. NIMESULIDE [Concomitant]
     Active Substance: NIMESULIDE
     Route: 048
  10. IVABRADINE [Concomitant]
     Active Substance: IVABRADINE
     Indication: Angina pectoris
     Route: 048
  11. BRINALDIX [Concomitant]
     Indication: Hypertension
     Route: 048
  12. POTASSIUM CHLORIDE [Concomitant]
     Active Substance: POTASSIUM CHLORIDE
     Indication: Hyperthyroidism
     Route: 048
     Dates: start: 20171229
  13. ALFUZOSIN [Concomitant]
     Active Substance: ALFUZOSIN
     Indication: Nocturia
     Route: 048
     Dates: start: 20180815
  14. ZOLEDRONIC ACID [Concomitant]
     Active Substance: ZOLEDRONIC ACID
     Indication: Metastases to bone
     Route: 042
     Dates: start: 20171012
  15. CALCIUM\CHOLECALCIFEROL [Concomitant]
     Active Substance: CALCIUM\CHOLECALCIFEROL
     Indication: Metastases to bone
     Route: 048
     Dates: start: 20190116
  16. LEVOTHYROXINE [Concomitant]
     Active Substance: LEVOTHYROXINE
     Indication: Hypothyroidism
     Route: 048
     Dates: start: 20201007
  17. BISOPROLOL [Concomitant]
     Active Substance: BISOPROLOL
     Indication: Hypertension
     Dates: start: 20210530
  18. ATORVASTATIN [Concomitant]
     Active Substance: ATORVASTATIN
     Indication: Hypokalaemia
     Dates: start: 20210530

REACTIONS (1)
  - Gamma-glutamyltransferase increased [Not Recovered/Not Resolved]

NARRATIVE: CASE EVENT DATE: 20210915
